FAERS Safety Report 14288259 (Version 1)
Quarter: 2017Q4

REPORT INFORMATION
  Report Type: Spontaneous
  Country: GB (occurrence: GB)
  Receive Date: 20171214
  Receipt Date: 20171214
  Transmission Date: 20180321
  Serious: Yes (Other)
  Sender: FDA-Public Use
  Company Number: GB-TEVA-2017-GB-831829

PATIENT
  Age: 59 Year
  Sex: Male

DRUGS (2)
  1. CISPLATIN. [Suspect]
     Active Substance: CISPLATIN
     Route: 065
  2. PEMETREXED - ACTAVIS [Suspect]
     Active Substance: PEMETREXED
     Dosage: ONCE IN 3 WEEKS FOR 8 MONTHS
     Route: 065
     Dates: start: 201612

REACTIONS (2)
  - Lymphangiosis carcinomatosa [Unknown]
  - Drug hypersensitivity [Unknown]

NARRATIVE: CASE EVENT DATE: 201705
